FAERS Safety Report 20597796 (Version 1)
Quarter: 2022Q1

REPORT INFORMATION
  Report Type: Spontaneous
  Country: US (occurrence: None)
  Receive Date: 20220315
  Receipt Date: 20220315
  Transmission Date: 20220424
  Serious: Yes (unspecified)
  Sender: FDA-Public Use
  Company Number: None

PATIENT
  Age: 50 Year
  Sex: Female
  Weight: 58.5 kg

DRUGS (1)
  1. PACLITAXEL [Suspect]
     Active Substance: PACLITAXEL
     Indication: Breast cancer
     Dosage: FREQUENCY : WEEKLY;?
     Dates: start: 20220303, end: 20220310

REACTIONS (3)
  - Peripheral swelling [None]
  - Swollen tongue [None]
  - Flushing [None]

NARRATIVE: CASE EVENT DATE: 20220310
